FAERS Safety Report 4340543-2 (Version None)
Quarter: 2004Q2

REPORT INFORMATION
  Report Type: 
  Country: None (occurrence: None)
  Receive Date: 20040414
  Receipt Date: 20040401
  Transmission Date: 20050107
  Serious: Yes (Death, Other)
  Sender: FDA-Public Use
  Company Number: 2004013264

PATIENT
  Age: 88 Year
  Sex: Male

DRUGS (9)
  1. SULPERAZON (CEFOPERAZONE, SULBACTAM) [Suspect]
     Indication: PNEUMONIA
     Dosage: 2 GRAM, INTRAVENOUS
     Route: 042
     Dates: start: 20040115, end: 20040120
  2. FUROSEMIDE [Concomitant]
  3. ACETYLSALICYLIC ACID SRT [Concomitant]
  4. HYDROXYZINE HCL [Concomitant]
  5. ROXATIDINE ACETATE HCL [Concomitant]
  6. PIMOBENDAN (PIMOBENDAN) [Concomitant]
  7. APRINDINE HYDROCHLORIDE (APRINDINE HYDROCHLORIDE) [Concomitant]
  8. ETIZOLAM (ETIZOLAM) [Concomitant]
  9. NITROGLYCERIN [Concomitant]

REACTIONS (5)
  - DIALYSIS [None]
  - HEPATIC FUNCTION ABNORMAL [None]
  - HEPATITIS FULMINANT [None]
  - JAUNDICE [None]
  - MULTI-ORGAN FAILURE [None]
